FAERS Safety Report 12140288 (Version 18)
Quarter: 2020Q1

REPORT INFORMATION
  Report Type: Spontaneous
  Country: US (occurrence: US)
  Receive Date: 20160303
  Receipt Date: 20200103
  Transmission Date: 20200409
  Serious: Yes (Other)
  Sender: FDA-Public Use
  Company Number: US-PFIZER INC-2016101882

PATIENT
  Age: 51 Year
  Sex: Female

DRUGS (12)
  1. LYRICA [Suspect]
     Active Substance: PREGABALIN
     Indication: NEUROPATHY PERIPHERAL
     Dosage: 100 MG, 3X/DAY
     Route: 048
  2. LYRICA [Suspect]
     Active Substance: PREGABALIN
     Dosage: UNK (100, UNIT NOT AVAILABLE)
  3. RESTASIS [Concomitant]
     Active Substance: CYCLOSPORINE
     Dosage: UNK, AS NEEDED (2 TIMES A DAY)
  4. RESTASIS [Concomitant]
     Active Substance: CYCLOSPORINE
     Indication: DRY EYE
     Dosage: 2 GTT, 4X/DAY (1 DROP IN EACH EYE)
     Dates: start: 2005
  5. LYRICA [Suspect]
     Active Substance: PREGABALIN
     Indication: NERVE INJURY
     Dosage: UNK
     Dates: start: 2008, end: 2008
  6. LYRICA [Suspect]
     Active Substance: PREGABALIN
     Indication: NEURALGIA
     Dosage: 50 MG, UNK
  7. LYRICA [Suspect]
     Active Substance: PREGABALIN
     Dosage: 200 MG, 1X/DAY
     Route: 048
  8. LYRICA [Suspect]
     Active Substance: PREGABALIN
     Dosage: 450 MG, DAILY (100 MG CAPSULE IN MORNING, 150 MG CAPSULE IN AFTERNOON, AND 200 MG CAPSULE AT NIGHT )
     Route: 048
  9. DRY EYES [Concomitant]
     Active Substance: MINERAL OIL\PETROLATUM
     Indication: DRY EYE
     Dosage: UNK, AS NEEDED
     Dates: start: 2005
  10. LYRICA [Suspect]
     Active Substance: PREGABALIN
     Indication: PAIN
     Dosage: 150 MG, 1X/DAY (AT NOON)
     Route: 048
  11. LYRICA [Suspect]
     Active Substance: PREGABALIN
     Dosage: 100 MG, 1X/DAY (IN THE MORNING)
     Route: 048
  12. PREMARIN [Concomitant]
     Active Substance: ESTROGENS, CONJUGATED
     Indication: HORMONE REPLACEMENT THERAPY
     Dosage: 0.9 MG, 1X/DAY
     Dates: start: 2000

REACTIONS (18)
  - Lower respiratory tract infection [Unknown]
  - Visual impairment [Recovered/Resolved]
  - Somnolence [Unknown]
  - Mobility decreased [Unknown]
  - Insomnia [Unknown]
  - Intentional product use issue [Unknown]
  - Pain [Unknown]
  - Dysstasia [Unknown]
  - Movement disorder [Not Recovered/Not Resolved]
  - Nasal congestion [Unknown]
  - Bone cyst [Unknown]
  - Gait inability [Unknown]
  - Upper respiratory tract infection [Unknown]
  - Tremor [Recovered/Resolved]
  - Malaise [Unknown]
  - Nasopharyngitis [Unknown]
  - Therapeutic product effect incomplete [Unknown]
  - Bronchitis [Unknown]

NARRATIVE: CASE EVENT DATE: 2008
